FAERS Safety Report 17070896 (Version 3)
Quarter: 2019Q4

REPORT INFORMATION
  Report Type: Spontaneous
  Country: JP (occurrence: JP)
  Receive Date: 20191125
  Receipt Date: 20191230
  Transmission Date: 20200122
  Serious: Yes (Other)
  Sender: FDA-Public Use
  Company Number: JP-PFIZER INC-2019508286

PATIENT
  Age: 2 Year
  Sex: Female

DRUGS (7)
  1. THIOPENTAL SODIUM. [Suspect]
     Active Substance: THIOPENTAL SODIUM
     Indication: TONIC CONVULSION
     Dosage: 6 MG/KG,1 HR
     Route: 041
  2. THIOPENTAL SODIUM. [Suspect]
     Active Substance: THIOPENTAL SODIUM
     Dosage: UNK
     Route: 041
  3. MIDAZOLAM [Concomitant]
     Active Substance: MIDAZOLAM HYDROCHLORIDE
     Indication: TONIC CONVULSION
     Dosage: UNK
     Route: 041
  4. FOSTOIN [Suspect]
     Active Substance: FOSPHENYTOIN SODIUM
     Indication: TONIC CONVULSION
     Dosage: UNK
     Route: 065
  5. NOBELBAR [Suspect]
     Active Substance: PHENOBARBITAL SODIUM
     Indication: TONIC CONVULSION
     Dosage: UNK
     Route: 065
  6. NOBELBAR [Suspect]
     Active Substance: PHENOBARBITAL SODIUM
     Indication: ELECTROENCEPHALOGRAM ABNORMAL
  7. FOSTOIN [Suspect]
     Active Substance: FOSPHENYTOIN SODIUM
     Indication: ELECTROENCEPHALOGRAM ABNORMAL

REACTIONS (5)
  - Peritonitis [Unknown]
  - Drug ineffective [Unknown]
  - Cardiovascular insufficiency [Unknown]
  - Ileus paralytic [Recovering/Resolving]
  - Septic shock [Unknown]
